FAERS Safety Report 10931104 (Version 3)
Quarter: 2015Q3

REPORT INFORMATION
  Report Type: Report from Study
  Country: US (occurrence: US)
  Receive Date: 20150319
  Receipt Date: 20150702
  Transmission Date: 20151125
  Serious: Yes (Hospitalization, Other)
  Sender: FDA-Public Use
  Company Number: US-ABBVIE-15P-163-1362230-00

PATIENT
  Age: 30 Year
  Sex: Female
  Weight: 110.32 kg

DRUGS (3)
  1. LEVOXYL [Concomitant]
     Active Substance: LEVOTHYROXINE SODIUM
     Indication: HYPOTHYROIDISM
     Dates: start: 2008
  2. LUPRON DEPOT [Suspect]
     Active Substance: LEUPROLIDE ACETATE
     Indication: UTERINE LEIOMYOMA
     Route: 065
     Dates: start: 20060101, end: 20060401
  3. LUPRON DEPOT [Suspect]
     Active Substance: LEUPROLIDE ACETATE
     Indication: UTERINE LEIOMYOMA
     Route: 065
     Dates: start: 20150415

REACTIONS (7)
  - Myomectomy [Recovered/Resolved]
  - Pelvic pain [Not Recovered/Not Resolved]
  - Menorrhagia [Recovering/Resolving]
  - Foot operation [Recovered/Resolved]
  - Thyroidectomy [Recovered/Resolved]
  - Menometrorrhagia [Recovering/Resolving]
  - Pulmonary embolism [Recovered/Resolved]

NARRATIVE: CASE EVENT DATE: 20060401
